FAERS Safety Report 4334422-4 (Version None)
Quarter: 2004Q1

REPORT INFORMATION
  Report Type: 
  Country: None (occurrence: None)
  Receive Date: 20040326
  Receipt Date: 20040212
  Transmission Date: 20041129
  Serious: No
  Sender: FDA-Public Use
  Company Number: WAES 0402USA00997

PATIENT
  Sex: Male

DRUGS (1)
  1. INVANZ [Suspect]
     Dosage: 1 GM/ DAILY/ IV
     Route: 042

REACTIONS (1)
  - DEEP VEIN THROMBOSIS [None]
